FAERS Safety Report 10130455 (Version 2)
Quarter: 2014Q2

REPORT INFORMATION
  Report Type: Spontaneous
  Country: US (occurrence: US)
  Receive Date: 20140428
  Receipt Date: 20140502
  Transmission Date: 20141212
  Serious: No
  Sender: FDA-Public Use
  Company Number: US-TEVA-477268USA

PATIENT
  Sex: Male
  Weight: 81.72 kg

DRUGS (1)
  1. NUVIGIL [Suspect]
     Indication: PRODUCT USED FOR UNKNOWN INDICATION
     Route: 048

REACTIONS (2)
  - Drug effect decreased [Not Recovered/Not Resolved]
  - Somnolence [Not Recovered/Not Resolved]
